FAERS Safety Report 11613694 (Version 2)
Quarter: 2016Q1

REPORT INFORMATION
  Report Type: Report from Study
  Country: US (occurrence: US)
  Receive Date: 20151008
  Receipt Date: 20160201
  Transmission Date: 20160525
  Serious: No
  Sender: FDA-Public Use
  Company Number: US-AMGEN-USASP2015099730

PATIENT
  Age: 62 Year
  Sex: Female

DRUGS (2)
  1. ENBREL [Suspect]
     Active Substance: ETANERCEPT
     Indication: RHEUMATOID ARTHRITIS
     Dosage: UNK UNK, UNK
     Route: 065
     Dates: start: 20151001
  2. METHOTREXATE [Concomitant]
     Active Substance: METHOTREXATE
     Dosage: UNK

REACTIONS (8)
  - Dyspnoea [Unknown]
  - Insomnia [Unknown]
  - Pharyngitis [Unknown]
  - Secretion discharge [Unknown]
  - Infection [Unknown]
  - Sinusitis [Unknown]
  - Malaise [Unknown]
  - Ear infection [Unknown]

NARRATIVE: CASE EVENT DATE: 20151001
